FAERS Safety Report 9758191 (Version 1)
Quarter: 2013Q4

REPORT INFORMATION
  Report Type: Spontaneous
  Country: US (occurrence: US)
  Receive Date: 20131216
  Receipt Date: 20131216
  Transmission Date: 20140711
  Serious: No
  Sender: FDA-Public Use
  Company Number: US-TEVA-412987USA

PATIENT
  Age: 32 Year
  Sex: Female
  Weight: 71.73 kg

DRUGS (1)
  1. PARAGARD 380A [Suspect]
     Indication: CONTRACEPTION
     Route: 015
     Dates: end: 20130613

REACTIONS (4)
  - Medical device complication [Unknown]
  - Abdominal pain lower [Unknown]
  - Metrorrhagia [Unknown]
  - Menstruation irregular [Unknown]
